FAERS Safety Report 20032177 (Version 1)
Quarter: 2021Q4

REPORT INFORMATION
  Report Type: Spontaneous
  Country: US (occurrence: US)
  Receive Date: 20211103
  Receipt Date: 20211103
  Transmission Date: 20220303
  Serious: No
  Sender: FDA-Public Use
  Company Number: US-PFIZER INC-202101023652

PATIENT
  Age: 85 Year
  Sex: Male

DRUGS (3)
  1. TAFAMIDIS [Suspect]
     Active Substance: TAFAMIDIS
     Indication: Amyloidosis senile
     Dosage: 61 MG, DAILY
     Dates: start: 202103
  2. TAFAMIDIS [Suspect]
     Active Substance: TAFAMIDIS
     Indication: Cardiac amyloidosis
  3. TAFAMIDIS [Suspect]
     Active Substance: TAFAMIDIS
     Indication: Cardiac failure

REACTIONS (5)
  - Nausea [Unknown]
  - Fatigue [Unknown]
  - Dizziness [Unknown]
  - Taste disorder [Unknown]
  - Bowel movement irregularity [Unknown]
